FAERS Safety Report 14944944 (Version 1)
Quarter: 2018Q2

REPORT INFORMATION
  Report Type: Spontaneous
  Country: FR (occurrence: FR)
  Receive Date: 20180529
  Receipt Date: 20180529
  Transmission Date: 20180711
  Serious: Yes (Hospitalization)
  Sender: FDA-Public Use
  Company Number: FR-TEVA-2018-FR-898875

PATIENT
  Age: 62 Year
  Sex: Male
  Weight: 72 kg

DRUGS (4)
  1. CYTARABINE EG [Suspect]
     Active Substance: CYTARABINE
     Indication: LYMPHOMA
     Dosage: 768 MILLIGRAM DAILY;
     Route: 042
     Dates: start: 20160921, end: 20160924
  2. ETOPOSIDE. [Suspect]
     Active Substance: ETOPOSIDE
     Indication: LYMPHOMA
     Dosage: 384 MILLIGRAM DAILY;
     Route: 042
     Dates: start: 20160921, end: 20160924
  3. BICNU [Suspect]
     Active Substance: CARMUSTINE
     Indication: LYMPHOMA
     Dosage: 576 MILLIGRAM DAILY;
     Route: 042
     Dates: start: 20160920, end: 20160920
  4. ALKERAN [Suspect]
     Active Substance: MELPHALAN
     Indication: LYMPHOMA
     Dosage: 268.8 MILLIGRAM DAILY;
     Route: 042
     Dates: start: 20160925, end: 20160925

REACTIONS (4)
  - Device related infection [Recovered/Resolved]
  - Diarrhoea [Recovered/Resolved]
  - Colitis [Recovered/Resolved]
  - Febrile bone marrow aplasia [Recovered/Resolved]

NARRATIVE: CASE EVENT DATE: 20160924
